FAERS Safety Report 9682164 (Version 4)
Quarter: 2015Q1

REPORT INFORMATION
  Report Type: Spontaneous
  Country: FR (occurrence: FR)
  Receive Date: 20131111
  Receipt Date: 20150212
  Transmission Date: 20150721
  Serious: Yes (Death)
  Sender: FDA-Public Use
  Company Number: FR-ROCHE-1297917

PATIENT
  Age: 67 Year
  Sex: Male

DRUGS (8)
  1. TAREG [Concomitant]
     Active Substance: VALSARTAN
  2. MABTHERA [Suspect]
     Active Substance: RITUXIMAB
     Route: 042
     Dates: start: 20130918
  3. LYRICA [Concomitant]
     Active Substance: PREGABALIN
  4. GLIBENCLAMIDE [Concomitant]
     Active Substance: GLYBURIDE
     Route: 065
  5. MABTHERA [Suspect]
     Active Substance: RITUXIMAB
     Indication: LYMPHOMA
     Route: 042
     Dates: start: 20130905, end: 20131021
  6. MABTHERA [Suspect]
     Active Substance: RITUXIMAB
     Route: 042
     Dates: start: 20130925, end: 20131021
  7. MABTHERA [Suspect]
     Active Substance: RITUXIMAB
     Indication: B-CELL LYMPHOMA
     Route: 042
     Dates: start: 20130912
  8. FASTURTEC [Concomitant]
     Active Substance: RASBURICASE
     Dosage: 1.5 MG/ML
     Route: 042
     Dates: start: 20130905, end: 20130905

REACTIONS (1)
  - Progressive multifocal leukoencephalopathy [Fatal]

NARRATIVE: CASE EVENT DATE: 201310
